FAERS Safety Report 9527063 (Version 4)
Quarter: 2015Q2

REPORT INFORMATION
  Report Type: Spontaneous
  Country: US (occurrence: US)
  Receive Date: 20130916
  Receipt Date: 20150521
  Transmission Date: 20150821
  Serious: Yes (Hospitalization, Other)
  Sender: FDA-Public Use
  Company Number: US-009507513-1309USA006811

PATIENT
  Sex: Female
  Weight: 60.59 kg

DRUGS (4)
  1. FOSAMAX [Suspect]
     Active Substance: ALENDRONATE SODIUM
     Indication: OSTEOPENIA
     Dosage: 70 MG, UNK
     Route: 048
     Dates: start: 20011105, end: 20110928
  2. FOSAMAX [Suspect]
     Active Substance: ALENDRONATE SODIUM
     Indication: OSTEOPOROSIS
  3. BONIVA [Suspect]
     Active Substance: IBANDRONATE SODIUM
     Indication: OSTEOPENIA
     Dosage: 150 MG, UNK
     Route: 048
     Dates: start: 20071016, end: 20110531
  4. VITAMINS (UNSPECIFIED) [Concomitant]
     Active Substance: VITAMINS
     Dosage: 1 DF, QD
     Dates: start: 1975, end: 2011

REACTIONS (24)
  - Intramedullary rod insertion [Unknown]
  - Red blood cell abnormality [Unknown]
  - Hypothyroidism [Unknown]
  - Osteoarthritis [Unknown]
  - Intramedullary rod insertion [Unknown]
  - Femur fracture [Unknown]
  - Sjogren^s syndrome [Unknown]
  - Autoimmune thyroiditis [Unknown]
  - Heart rate irregular [Unknown]
  - Decreased appetite [Unknown]
  - Femur fracture [Unknown]
  - Palpitations [Unknown]
  - Hypercholesterolaemia [Unknown]
  - Hypoparathyroidism [Unknown]
  - Somnolence [Unknown]
  - Anaemia postoperative [Unknown]
  - Anisocytosis [Unknown]
  - Platelet disorder [Unknown]
  - Low turnover osteopathy [Unknown]
  - Adverse event [Unknown]
  - Vertigo positional [Unknown]
  - Bursitis [Unknown]
  - Hypokalaemia [Unknown]
  - Adverse reaction [Unknown]

NARRATIVE: CASE EVENT DATE: 2001
